FAERS Safety Report 8543108-1 (Version None)
Quarter: 2012Q3

REPORT INFORMATION
  Report Type: 
  Country: None (occurrence: None)
  Receive Date: 20120727
  Receipt Date: 20111102
  Transmission Date: 20120928
  Serious: No
  Sender: FDA-Public Use
  Company Number: US-MYLANLABS-2011S1022600

PATIENT
  Age: 68 Year
  Sex: Female

DRUGS (8)
  1. PROMETHAZINE HCL AND CODEINE [Concomitant]
  2. NIFEDIPINE [Concomitant]
  3. TRAMADOL HYDROCHLORIDE [Concomitant]
  4. LEVOTHYROXINE SODIUM [Suspect]
     Dates: start: 20111020, end: 20111020
  5. MIRALAX /00754501/ [Concomitant]
  6. ATENOLOL [Concomitant]
  7. HYDROCHLOROTHIAZIDE [Concomitant]
  8. AMBIEN [Concomitant]

REACTIONS (7)
  - CONFUSIONAL STATE [None]
  - DYSPNOEA [None]
  - NAUSEA [None]
  - CHOKING SENSATION [None]
  - PARAESTHESIA [None]
  - DIZZINESS [None]
  - INSOMNIA [None]
